FAERS Safety Report 20647500 (Version 1)
Quarter: 2022Q1

REPORT INFORMATION
  Report Type: Spontaneous
  Country: US (occurrence: US)
  Receive Date: 20220329
  Receipt Date: 20220329
  Transmission Date: 20220424
  Serious: No
  Sender: FDA-Public Use
  Company Number: US-APOTEX-2021AP042571

PATIENT
  Sex: Male

DRUGS (2)
  1. DESMOPRESSIN ACETATE [Suspect]
     Active Substance: DESMOPRESSIN ACETATE
     Indication: Diabetes insipidus
     Dosage: 2 DOSAGE FORM, TID
     Route: 065
     Dates: start: 2021
  2. ATENOLOL [Concomitant]
     Active Substance: ATENOLOL
     Indication: Tachycardia
     Dosage: 25 MILLIGRAM, QD
     Route: 065

REACTIONS (5)
  - Polyuria [Recovered/Resolved]
  - Dehydration [Recovered/Resolved]
  - Product quality issue [Unknown]
  - Extra dose administered [Unknown]
  - Therapeutic product effect incomplete [Unknown]

NARRATIVE: CASE EVENT DATE: 20210101
